FAERS Safety Report 17522099 (Version 1)
Quarter: 2020Q1

REPORT INFORMATION
  Report Type: Not Available
  Country: US (occurrence: US)
  Receive Date: 20200310
  Receipt Date: 20200310
  Transmission Date: 20200409
  Serious: No
  Sender: FDA-Public Use
  Company Number: US-NEUROCRINE BIOSCIENCES INC.-2020NBI00672

PATIENT
  Age: 70 Year
  Sex: Female

DRUGS (25)
  1. HUMALOG [Concomitant]
     Active Substance: INSULIN LISPRO
  2. AMLODIPINE [Concomitant]
     Active Substance: AMLODIPINE BESYLATE
  3. ATROVENT [Concomitant]
     Active Substance: IPRATROPIUM BROMIDE
  4. ELIQUIS [Concomitant]
     Active Substance: APIXABAN
  5. SEROQUEL [Concomitant]
     Active Substance: QUETIAPINE FUMARATE
  6. CLONIDINE. [Concomitant]
     Active Substance: CLONIDINE
  7. INGREZZA [Suspect]
     Active Substance: VALBENAZINE
     Indication: TARDIVE DYSKINESIA
     Route: 048
     Dates: start: 202002
  8. ALBUTEROL INH [Concomitant]
     Active Substance: ALBUTEROL
     Route: 045
  9. ROPINIROLE. [Concomitant]
     Active Substance: ROPINIROLE
  10. CYTOMEL [Concomitant]
     Active Substance: LIOTHYRONINE SODIUM
  11. ONDANSETRON [Concomitant]
     Active Substance: ONDANSETRON
  12. LANTUS [Concomitant]
     Active Substance: INSULIN GLARGINE
  13. FUROSEMIDE. [Concomitant]
     Active Substance: FUROSEMIDE
  14. TRINTELLIX [Concomitant]
     Active Substance: VORTIOXETINE HYDROBROMIDE
  15. GABAPENTIN. [Concomitant]
     Active Substance: GABAPENTIN
  16. ATORVASTATIN [Concomitant]
     Active Substance: ATORVASTATIN
  17. CHLORTHALIDONE. [Concomitant]
     Active Substance: CHLORTHALIDONE
  18. POTASSIUM CHLORIDE. [Concomitant]
     Active Substance: POTASSIUM CHLORIDE
  19. AMBIEN [Concomitant]
     Active Substance: ZOLPIDEM TARTRATE
  20. LIDOCAINE TOPICAL PATCHES [Concomitant]
     Route: 061
  21. TRIDERM [Concomitant]
     Active Substance: TRIAMCINOLONE ACETONIDE
  22. TRIANEX [Concomitant]
     Active Substance: TRIAMCINOLONE ACETONIDE
  23. BREO ELLIPTA [Concomitant]
     Active Substance: FLUTICASONE FUROATE\VILANTEROL TRIFENATATE
  24. LAMICTAL [Concomitant]
     Active Substance: LAMOTRIGINE
  25. RAMIPRIL. [Concomitant]
     Active Substance: RAMIPRIL

REACTIONS (6)
  - Swollen tongue [Unknown]
  - Dizziness [Unknown]
  - Drooling [Unknown]
  - Salivary hypersecretion [Unknown]
  - Polyuria [Unknown]
  - Blood pressure increased [Unknown]

NARRATIVE: CASE EVENT DATE: 202002
